FAERS Safety Report 8131966-4 (Version None)
Quarter: 2012Q1

REPORT INFORMATION
  Report Type: 
  Country: None (occurrence: None)
  Receive Date: 20120208
  Receipt Date: 20120125
  Transmission Date: 20120608
  Serious: Yes (Hospitalization, Disabling, Other)
  Sender: FDA-Public Use
  Company Number: 2010MA005194

PATIENT
  Sex: Female
  Weight: 81.0124 kg

DRUGS (68)
  1. LASIX [Concomitant]
  2. LISINOPRIL [Concomitant]
  3. ZEGERID [Concomitant]
  4. GYNAZOLE [Concomitant]
  5. PREMARIN [Concomitant]
  6. TERAZOL 1 [Concomitant]
  7. REPREXAIN [Concomitant]
  8. ZANAFLEX [Concomitant]
  9. ATENOLOL [Concomitant]
  10. CELEXA [Concomitant]
  11. NYSTATIN [Concomitant]
  12. COGENTIN [Concomitant]
  13. JANUVIA [Concomitant]
  14. LYRICA [Concomitant]
  15. ARMODAFINIL [Concomitant]
  16. INSULIN [Concomitant]
  17. MYCOLOG [Concomitant]
  18. PROVIGIL [Concomitant]
  19. NORCO [Concomitant]
  20. MAGNESIUM SULFATE [Concomitant]
  21. LANTUS [Concomitant]
  22. LOVASTATIN [Concomitant]
  23. TRAMADOL HCL [Concomitant]
  24. FLAGYL [Concomitant]
  25. SOLU-MEDROL [Concomitant]
  26. TORADOL [Concomitant]
  27. METOCLOPRAMIDE [Suspect]
     Indication: GASTROINTESTINAL DISORDER
     Dosage: 10 MG;PO
     Route: 048
     Dates: start: 20061020, end: 20070928
  28. METOCLOPRAMIDE [Suspect]
     Indication: ABDOMINAL PAIN
     Dosage: 10 MG;PO
     Route: 048
     Dates: start: 20061020, end: 20070928
  29. CITALOPRAM HYDROBROMIDE [Concomitant]
  30. MELOXICAM [Concomitant]
  31. RECLAST [Concomitant]
  32. PHENERGAN [Concomitant]
  33. CITRUCEL [Concomitant]
  34. VITAMIN D [Concomitant]
  35. ZOLOFT [Concomitant]
  36. ELOCON [Concomitant]
  37. DICLOFENAC [Concomitant]
  38. CIPROFLOXACIN HCL [Concomitant]
  39. TOPICORT [Concomitant]
  40. NAPROXEN (ALEVE) [Concomitant]
  41. CALCIUM [Concomitant]
  42. ROCEPHIN [Concomitant]
  43. HUMULIN 70/30 [Concomitant]
  44. TEMAZEPAM [Concomitant]
  45. AVANDIA [Concomitant]
  46. HYDROCORTISONE [Concomitant]
  47. PREDNISONE [Concomitant]
  48. METROGEL [Concomitant]
  49. TETRACYCLINE [Concomitant]
  50. NEURONTIN [Concomitant]
  51. STEROIDS [Concomitant]
  52. AVANDARYL [Concomitant]
  53. TETRACYCLINE [Concomitant]
  54. ZETIA [Concomitant]
  55. CYCLOBENZAPRINE [Concomitant]
  56. APAP TAB [Concomitant]
  57. IRON [Concomitant]
  58. ACTOS [Concomitant]
  59. PRILOSEC OTC [Concomitant]
  60. ALBUTEROL [Concomitant]
  61. LOMOTIL [Concomitant]
  62. BENADRYL [Concomitant]
  63. VITAMIN B COMPLEX CAP [Concomitant]
  64. DEPO-MEDROL [Concomitant]
  65. FORTEO [Concomitant]
  66. PEPCID [Concomitant]
  67. ZITHROMAX [Concomitant]
  68. TETANUS/DIPHTHERIA [Concomitant]

REACTIONS (72)
  - NECK PAIN [None]
  - IDIOPATHIC THROMBOCYTOPENIC PURPURA [None]
  - RIB FRACTURE [None]
  - MULTIPLE INJURIES [None]
  - NERVOUS SYSTEM DISORDER [None]
  - ACTIVITIES OF DAILY LIVING IMPAIRED [None]
  - PAIN [None]
  - GASTROENTERITIS [None]
  - BLOOD COPPER DECREASED [None]
  - ASPARTATE AMINOTRANSFERASE INCREASED [None]
  - STAPHYLOCOCCUS TEST POSITIVE [None]
  - SPINAL COMPRESSION FRACTURE [None]
  - ALANINE AMINOTRANSFERASE INCREASED [None]
  - TYPE 2 DIABETES MELLITUS [None]
  - FAMILY STRESS [None]
  - DENTAL CARIES [None]
  - DIZZINESS [None]
  - POLYMYALGIA RHEUMATICA [None]
  - ARTHRALGIA [None]
  - CULTURE URINE POSITIVE [None]
  - RADICULOPATHY [None]
  - FIBROMYALGIA [None]
  - LACERATION [None]
  - CONTUSION [None]
  - HYPERSOMNIA [None]
  - ASTHENIA [None]
  - DECREASED APPETITE [None]
  - GASTRITIS [None]
  - HYPOGLYCAEMIA [None]
  - GINGIVAL PAIN [None]
  - BRONCHITIS [None]
  - RETCHING [None]
  - BITE [None]
  - OSTEOARTHRITIS [None]
  - PARKINSON'S DISEASE [None]
  - LIMB INJURY [None]
  - DERMATITIS [None]
  - IRON DEFICIENCY ANAEMIA [None]
  - TONGUE ULCERATION [None]
  - URINARY TRACT INFECTION [None]
  - HEADACHE [None]
  - OEDEMA PERIPHERAL [None]
  - ATAXIA [None]
  - TARDIVE DYSKINESIA [None]
  - BLOOD CULTURE POSITIVE [None]
  - CEREBRAL ATROPHY [None]
  - SINUS DISORDER [None]
  - EPISTAXIS [None]
  - EXTRAPYRAMIDAL DISORDER [None]
  - DEFORMITY [None]
  - MENTAL DISORDER [None]
  - DYSKINESIA [None]
  - SOMNOLENCE [None]
  - SALIVARY GLAND ENLARGEMENT [None]
  - FATIGUE [None]
  - HYPOTHYROIDISM [None]
  - SLEEP APNOEA SYNDROME [None]
  - EPSTEIN-BARR VIRUS INFECTION [None]
  - OSTEOPENIA [None]
  - DEHYDRATION [None]
  - WOUND [None]
  - CHOLELITHIASIS [None]
  - ECONOMIC PROBLEM [None]
  - NAUSEA [None]
  - RASH [None]
  - DUODENAL ULCER [None]
  - ENTEROCOCCUS TEST POSITIVE [None]
  - WHITE BLOOD CELL COUNT DECREASED [None]
  - CEREBELLAR ATROPHY [None]
  - AORTIC ARTERIOSCLEROSIS [None]
  - OSTEOPOROSIS [None]
  - HYPERCHOLESTEROLAEMIA [None]
